FAERS Safety Report 17360027 (Version 1)
Quarter: 2020Q1

REPORT INFORMATION
  Report Type: Spontaneous
  Country: US (occurrence: US)
  Receive Date: 20200203
  Receipt Date: 20200203
  Transmission Date: 20200409
  Serious: No
  Sender: FDA-Public Use
  Company Number: US-BRISTOL-MYERS SQUIBB COMPANY-BMS-2020-007277

PATIENT
  Sex: Female

DRUGS (1)
  1. ORENCIA [Suspect]
     Active Substance: ABATACEPT
     Indication: ILL-DEFINED DISORDER
     Dosage: 125 MILLIGRAM, QWK
     Route: 058
     Dates: start: 201904

REACTIONS (2)
  - Device malfunction [Unknown]
  - Product quality issue [Unknown]
